FAERS Safety Report 7502545-4 (Version None)
Quarter: 2011Q2

REPORT INFORMATION
  Report Type: 
  Country: None (occurrence: None)
  Receive Date: 20110525
  Receipt Date: 20110114
  Transmission Date: 20111010
  Serious: No
  Sender: FDA-Public Use
  Company Number: US-MYLANLABS-2011S1001241

PATIENT
  Sex: Female

DRUGS (6)
  1. METHYLDOPA [Suspect]
     Indication: BLOOD PRESSURE INCREASED
     Route: 048
     Dates: start: 20101229
  2. PLAQUENIL [Concomitant]
  3. CARVEDILOL [Concomitant]
  4. TEKTURNA [Concomitant]
  5. CLONIDINE [Concomitant]
  6. VITAMIN D [Concomitant]

REACTIONS (2)
  - MYALGIA [None]
  - MUSCULOSKELETAL STIFFNESS [None]
